FAERS Safety Report 10701212 (Version 3)
Quarter: 2015Q1

REPORT INFORMATION
  Report Type: Spontaneous
  Country: US (occurrence: US)
  Receive Date: 20150109
  Receipt Date: 20150205
  Transmission Date: 20150721
  Serious: Yes (Death)
  Sender: FDA-Public Use
  Company Number: US-JNJFOC-20150104550

PATIENT
  Age: 49 Year
  Sex: Male

DRUGS (3)
  1. TRAMADOL [Suspect]
     Active Substance: TRAMADOL
     Indication: POISONING DELIBERATE
     Route: 048
  2. CARBON MONOXIDE [Suspect]
     Active Substance: CARBON MONOXIDE
     Indication: POISONING DELIBERATE
     Route: 055
  3. COCAINE [Suspect]
     Active Substance: COCAINE
     Indication: POISONING DELIBERATE
     Route: 048

REACTIONS (2)
  - Toxicity to various agents [Fatal]
  - Intentional product misuse [Fatal]
